FAERS Safety Report 19153637 (Version 4)
Quarter: 2021Q4

REPORT INFORMATION
  Report Type: Spontaneous
  Country: AR (occurrence: AR)
  Receive Date: 20210419
  Receipt Date: 20211006
  Transmission Date: 20220303
  Serious: Yes (Other)
  Sender: FDA-Public Use
  Company Number: AR-GLAXOSMITHKLINE-AR2021AMR026075

PATIENT
  Age: 67 Year
  Sex: Female

DRUGS (2)
  1. NUCALA [Suspect]
     Active Substance: MEPOLIZUMAB
     Indication: Asthma
     Dosage: UNK
     Route: 042
     Dates: start: 20200107
  2. COVID-19 VACCINE NOS [Suspect]
     Active Substance: COVID-19 VACCINE NOS
     Indication: Product used for unknown indication
     Dosage: UNK
     Dates: start: 20210428

REACTIONS (12)
  - Hip fracture [Not Recovered/Not Resolved]
  - Femur fracture [Unknown]
  - Fatigue [Not Recovered/Not Resolved]
  - Nervousness [Unknown]
  - Accident at home [Unknown]
  - Joint dislocation [Unknown]
  - Hip surgery [Not Recovered/Not Resolved]
  - Pain in extremity [Unknown]
  - Cough [Unknown]
  - Chest discomfort [Unknown]
  - Headache [Not Recovered/Not Resolved]
  - Treatment noncompliance [Unknown]

NARRATIVE: CASE EVENT DATE: 20210125
